FAERS Safety Report 5713025-0 (Version None)
Quarter: 2008Q2

REPORT INFORMATION
  Report Type: 
  Country: None (occurrence: None)
  Receive Date: 20080422
  Receipt Date: 20080418
  Transmission Date: 20081010
  Serious: Yes (Hospitalization)
  Sender: FDA-Public Use
  Company Number: FR-ASTRAZENECA-2008CG00276

PATIENT
  Age: 16648 Day
  Sex: Male
  Weight: 75 kg

DRUGS (1)
  1. CARBOCAINE [Suspect]
     Indication: ANAESTHESIA
     Route: 053
     Dates: start: 20080218, end: 20080218

REACTIONS (3)
  - DYSPHAGIA [None]
  - DYSPHONIA [None]
  - PARAESTHESIA ORAL [None]
